FAERS Safety Report 18319152 (Version 1)
Quarter: 2020Q3

REPORT INFORMATION
  Report Type: Spontaneous
  Country: US (occurrence: US)
  Receive Date: 20200928
  Receipt Date: 20200928
  Transmission Date: 20201103
  Serious: Yes (Hospitalization)
  Sender: FDA-Public Use
  Company Number: None

PATIENT
  Sex: Female

DRUGS (26)
  1. ENBREL [Suspect]
     Active Substance: ETANERCEPT
     Indication: ARTHRITIS
     Dosage: 1 PEN (50 MG)
     Route: 058
     Dates: start: 20170929
  2. AMLODIPINE [Concomitant]
     Active Substance: AMLODIPINE BESYLATE
  3. POLYETH GLYC [Concomitant]
     Active Substance: POLYETHYLENE GLYCOLS
  4. SPIRONOLACT [Concomitant]
     Active Substance: SPIRONOLACTONE
  5. ANASTROZOLE. [Concomitant]
     Active Substance: ANASTROZOLE
  6. DOXYCYCL HYC [Concomitant]
  7. AZELASTINE. [Concomitant]
     Active Substance: AZELASTINE HYDROCHLORIDE
  8. OMEPRAZOLE. [Concomitant]
     Active Substance: OMEPRAZOLE
  9. NEXIUM [Concomitant]
     Active Substance: ESOMEPRAZOLE MAGNESIUM
  10. PREDNISONE. [Concomitant]
     Active Substance: PREDNISONE
  11. AMOXICILLIN. [Concomitant]
     Active Substance: AMOXICILLIN
  12. DOXYCYC MONO [Concomitant]
     Active Substance: DOXYCYCLINE
  13. HYDROCO/APAP [Concomitant]
     Active Substance: ACETAMINOPHEN\HYDROCODONE
  14. IBUPROFEN. [Concomitant]
     Active Substance: IBUPROFEN
  15. METHYLPRED [Concomitant]
     Active Substance: METHYLPREDNISOLONE
  16. OXYCODONE AND ACETAMINOPHEN [Concomitant]
     Active Substance: ACETAMINOPHEN\OXYCODONE HYDROCHLORIDE
  17. FUROSEMIDE. [Concomitant]
     Active Substance: FUROSEMIDE
  18. HYDROCHLOROT [Concomitant]
     Active Substance: HYDROCHLOROTHIAZIDE
  19. KETOCONAZOLE. [Concomitant]
     Active Substance: KETOCONAZOLE
  20. NORVASC [Concomitant]
     Active Substance: AMLODIPINE BESYLATE
  21. CRESTOR [Concomitant]
     Active Substance: ROSUVASTATIN CALCIUM
  22. HYDROXYCHLOR [Concomitant]
     Active Substance: HYDROXYCHLOROQUINE
  23. LEVOTHYROXIN [Concomitant]
     Active Substance: LEVOTHYROXINE
  24. METHOCARBAM [Concomitant]
     Active Substance: METHOCARBAMOL
  25. LISINOPRIL. [Concomitant]
     Active Substance: LISINOPRIL
  26. ROSUVASTATIN. [Concomitant]
     Active Substance: ROSUVASTATIN

REACTIONS (1)
  - Spinal operation [None]
